FAERS Safety Report 21046514 (Version 1)
Quarter: 2022Q3

REPORT INFORMATION
  Report Type: Spontaneous
  Country: US (occurrence: US)
  Receive Date: 20220706
  Receipt Date: 20220706
  Transmission Date: 20221026
  Serious: No
  Sender: FDA-Public Use
  Company Number: US-ALLERGAN-2219863US

PATIENT
  Age: 44 Year
  Sex: Female

DRUGS (3)
  1. UBRELVY [Suspect]
     Active Substance: UBROGEPANT
     Indication: Product used for unknown indication
     Dosage: UNK
     Dates: start: 202112
  2. COVID-19 VACCINE [Concomitant]
     Indication: COVID-19 immunisation
     Dosage: UNK UNK, SINGLE
     Dates: start: 20220201, end: 20220201
  3. COVID-19 VACCINE [Concomitant]
     Dosage: UNK, SINGLE
     Dates: start: 20220301, end: 20220301

REACTIONS (2)
  - COVID-19 [Unknown]
  - Drug ineffective [Unknown]

NARRATIVE: CASE EVENT DATE: 20220605
